FAERS Safety Report 7077810-8 (Version None)
Quarter: 2010Q4

REPORT INFORMATION
  Report Type: 
  Country: None (occurrence: None)
  Receive Date: 20101101
  Receipt Date: 20101019
  Transmission Date: 20110411
  Serious: Yes (Hospitalization, Disabling, Other)
  Sender: FDA-Public Use
  Company Number: PHHY2010US66147

PATIENT
  Age: 19 Year
  Sex: Male

DRUGS (39)
  1. SANDIMMUNE [Suspect]
     Indication: APLASTIC ANAEMIA
     Dosage: 400 MG, BID
     Route: 048
     Dates: start: 20100803, end: 20100811
  2. SANDIMMUNE [Suspect]
     Dosage: 400 MG DAILY
     Route: 048
     Dates: start: 20100811, end: 20100923
  3. ANTI-THYMOCYTE GLOBULIN NOS [Concomitant]
     Indication: APLASTIC ANAEMIA
  4. PREDNISONE [Concomitant]
     Indication: APLASTIC ANAEMIA
  5. ACYCLOVIR SODIUM [Concomitant]
  6. PRIMAXIN [Concomitant]
  7. VANCOMYCIN [Concomitant]
  8. VICOMINE [Concomitant]
  9. AMBISOME [Concomitant]
     Indication: ASPERGILLOSIS
     Dosage: 450 MG DAILY
     Route: 042
     Dates: start: 20100924
  10. MYCAMINE [Concomitant]
     Dosage: 100 MG, DAILY
     Route: 042
  11. SODIUM CHLORIDE [Concomitant]
     Dosage: 100 ML
  12. K-DUR [Concomitant]
     Dosage: 20 MEQ, BID
     Route: 048
  13. LOPERAMIDE HYDROCHLORIDE [Concomitant]
     Dosage: 4MG
     Route: 048
  14. FEVERALL [Concomitant]
     Dosage: 650 MG,
  15. ACETAMINOPHEN [Concomitant]
     Dosage: 650 MG
     Route: 048
  16. MEPERIDINE HYDROCHLORIDE [Concomitant]
     Dosage: 50 MG
     Route: 042
  17. DIPHENHYDRAMINE HYDROCHLORIDE [Concomitant]
     Dosage: 25 MG
     Route: 048
  18. VALTREX [Concomitant]
     Dosage: 1000 MG, DAILY
     Route: 048
  19. ZYVOX [Concomitant]
     Dosage: 600MG
     Route: 048
  20. GUAIFENESIN W CODEINE [Concomitant]
     Dosage: 5ML
     Route: 048
  21. PHENERGAN [Concomitant]
     Dosage: 12.5MG
     Route: 048
  22. HEPARIN [Concomitant]
     Dosage: 200 UNITS
     Route: 042
  23. SALINE LOCK FLUSH [Concomitant]
     Dosage: 10 ML
     Route: 042
  24. NARCAN [Concomitant]
     Dosage: 0.4 MG
     Route: 042
  25. IPRATR [Concomitant]
  26. ALBUTEROL [Concomitant]
  27. BUMEX [Concomitant]
     Dosage: 1 MG,
     Route: 042
  28. BUPIVACAINE HCL [Concomitant]
     Dosage: 150 ML
  29. PROPOFOL [Concomitant]
     Dosage: 100 ML
     Route: 042
  30. MORPHINE SULFATE [Concomitant]
     Dosage: 2 MG
     Route: 042
  31. PROMETHAZINE [Concomitant]
     Dosage: 25 ML
     Route: 042
  32. VFEND [Concomitant]
     Dosage: 460 MG
     Route: 042
  33. LEUKINE [Concomitant]
     Dosage: 250 MCG
     Route: 058
  34. IMIPENEM [Concomitant]
     Dosage: 500 MCG
     Route: 042
  35. ATROPINE [Concomitant]
     Dosage: 0.5 MG
     Route: 042
  36. LIDOCAINE [Concomitant]
     Dosage: 500 ML
     Route: 042
  37. NEXIUM [Concomitant]
     Dosage: 40 MG
     Route: 042
  38. NITROSTAT [Concomitant]
     Dosage: 0.4 MG
  39. HYDROMORPHONE HYDROCHLORIDE [Concomitant]
     Dosage: 1 MG
     Route: 048

REACTIONS (6)
  - APLASTIC ANAEMIA [None]
  - ASPERGILLOSIS [None]
  - FEBRILE NEUTROPENIA [None]
  - IMMUNOSUPPRESSION [None]
  - PANCYTOPENIA [None]
  - PROTEIN TOTAL ABNORMAL [None]
